FAERS Safety Report 10715455 (Version 5)
Quarter: 2019Q1

REPORT INFORMATION
  Report Type: Report from Study
  Country: BR (occurrence: BR)
  Receive Date: 20150116
  Receipt Date: 20190225
  Transmission Date: 20190417
  Serious: Yes (Hospitalization, Other)
  Sender: FDA-Public Use
  Company Number: BR-ROCHE-1521485

PATIENT
  Age: 77 Year
  Sex: Female
  Weight: 80 kg

DRUGS (22)
  1. DIPYRONE [Concomitant]
     Active Substance: DIPYRONE
  2. SPIRONOLACTONE. [Concomitant]
     Active Substance: SPIRONOLACTONE
     Indication: CARDIAC DISORDER
     Dosage: ONE TABLET IN THE MORNING
     Route: 065
  3. SPIRONOLACTONE. [Concomitant]
     Active Substance: SPIRONOLACTONE
     Indication: HYPERTENSION
  4. CYMBALTA [Concomitant]
     Active Substance: DULOXETINE HYDROCHLORIDE
     Dosage: ONE TABLET IN THE MORNING
     Route: 065
  5. ARAVA [Concomitant]
     Active Substance: LEFLUNOMIDE
     Indication: HYPERTENSION
     Route: 065
  6. TRAYENTA DUO [Concomitant]
     Active Substance: LINAGLIPTIN\METFORMIN HYDROCHLORIDE
     Dosage: ONE TABLET IN THE MORNING
     Route: 065
  7. INSULIN [Concomitant]
     Active Substance: INSULIN NOS
     Indication: DIABETES MELLITUS
  8. CONCOR [Concomitant]
     Active Substance: BISOPROLOL FUMARATE
     Indication: CARDIAC DISORDER
     Dosage: ONE TABLET IN THE MORNING AND ANOTHER ONE AT NIGHT
     Route: 065
  9. ACTEMRA [Suspect]
     Active Substance: TOCILIZUMAB
     Indication: RHEUMATOID ARTHRITIS
     Route: 042
     Dates: start: 20101001, end: 20150901
  10. MABTHERA [Suspect]
     Active Substance: RITUXIMAB
     Indication: RHEUMATOID ARTHRITIS
     Route: 042
     Dates: start: 20151111
  11. ARAVA [Concomitant]
     Active Substance: LEFLUNOMIDE
     Indication: RHEUMATOID ARTHRITIS
     Dosage: ONE TABLET AT NIGHT
     Route: 065
  12. LASIX [Concomitant]
     Active Substance: FUROSEMIDE
     Route: 065
  13. NAPRIX [Concomitant]
     Active Substance: RAMIPRIL
     Indication: CARDIAC DISORDER
     Route: 065
  14. VITAMIN A [Concomitant]
     Active Substance: VITAMIN A
  15. PROLIA [Concomitant]
     Active Substance: DENOSUMAB
     Indication: OSTEOPOROSIS
     Route: 065
  16. SIMVASTATIN. [Concomitant]
     Active Substance: SIMVASTATIN
     Indication: CARDIAC DISORDER
  17. ADALAT [Concomitant]
     Active Substance: NIFEDIPINE
     Dosage: ONE TABLET AT NIGHT
     Route: 065
  18. ADALAT [Concomitant]
     Active Substance: NIFEDIPINE
     Indication: CARDIAC DISORDER
     Route: 065
  19. OMEPRAZOLE. [Concomitant]
     Active Substance: OMEPRAZOLE
     Route: 065
  20. PROCORALAN [Concomitant]
     Active Substance: IVABRADINE
     Indication: CARDIAC DISORDER
  21. SIMVASTATIN. [Concomitant]
     Active Substance: SIMVASTATIN
     Indication: HYPERTENSION
     Dosage: ONE TABLET AT NIGHT
     Route: 065
  22. VITAMIN E [Concomitant]
     Active Substance: .ALPHA.-TOCOPHEROL

REACTIONS (29)
  - Impaired healing [Unknown]
  - Anaemia [Not Recovered/Not Resolved]
  - Swelling [Not Recovered/Not Resolved]
  - Nosocomial infection [Recovered/Resolved]
  - Immunodeficiency [Unknown]
  - Diarrhoea [Recovering/Resolving]
  - Cholecystitis [Unknown]
  - Back pain [Recovered/Resolved]
  - Osteoporosis [Not Recovered/Not Resolved]
  - Colitis [Unknown]
  - Gallbladder rupture [Unknown]
  - Intestinal perforation [Unknown]
  - Infection [Unknown]
  - Drug ineffective [Unknown]
  - Nasal pruritus [Not Recovered/Not Resolved]
  - Cholelithiasis [Unknown]
  - Clostridial infection [Unknown]
  - Fistula [Unknown]
  - Bundle branch block left [Unknown]
  - Diabetes mellitus [Not Recovered/Not Resolved]
  - Fatigue [Not Recovered/Not Resolved]
  - Eye pruritus [Not Recovered/Not Resolved]
  - Left ventricular failure [Unknown]
  - Hypertension [Not Recovered/Not Resolved]
  - Ear pruritus [Not Recovered/Not Resolved]
  - Bacterial infection [Not Recovered/Not Resolved]
  - Synovial cyst [Recovering/Resolving]
  - Pain in extremity [Unknown]
  - Renal disorder [Unknown]

NARRATIVE: CASE EVENT DATE: 20141020
